FAERS Safety Report 7339664-1 (Version None)
Quarter: 2011Q1

REPORT INFORMATION
  Report Type: 
  Country: None (occurrence: None)
  Receive Date: 20110308
  Receipt Date: 20110302
  Transmission Date: 20110831
  Serious: Yes (Other)
  Sender: FDA-Public Use
  Company Number: FR-BRISTOL-MYERS SQUIBB COMPANY-15450695

PATIENT
  Age: 28 Year
  Sex: Female
  Weight: 66 kg

DRUGS (9)
  1. TERCIAN [Suspect]
     Route: 048
     Dates: start: 20080101
  2. BROMAZEPAM [Suspect]
     Dosage: 1DF=3X1/4TABLET
     Route: 048
     Dates: start: 20101201
  3. CONTRACEPTIVE [Concomitant]
  4. ABILIFY [Suspect]
     Indication: PARANOIA
     Route: 048
     Dates: start: 20081001, end: 20101214
  5. ABILIFY [Suspect]
     Indication: SCHIZOPHRENIA
     Route: 048
     Dates: start: 20081001, end: 20101214
  6. ABILIFY [Suspect]
     Indication: HALLUCINATION
     Route: 048
     Dates: start: 20081001, end: 20101214
  7. HALDOL [Suspect]
     Indication: PSYCHOTIC DISORDER
     Route: 048
     Dates: start: 20080101
  8. ABILIFY [Suspect]
     Indication: PSYCHOTIC DISORDER
     Route: 048
     Dates: start: 20081001, end: 20101214
  9. PARKINANE [Suspect]
     Dosage: FEB08-14DEC08(4MG), 3.5MG 14DEC10-
     Route: 048
     Dates: start: 20080201, end: 20101214

REACTIONS (3)
  - HAEMORRHAGE [None]
  - ABORTION SPONTANEOUS [None]
  - PREGNANCY [None]
